FAERS Safety Report 7469158-4 (Version None)
Quarter: 2011Q2

REPORT INFORMATION
  Report Type: 
  Country: None (occurrence: None)
  Receive Date: 20110510
  Receipt Date: 20110408
  Transmission Date: 20111010
  Serious: Yes (Hospitalization, Other)
  Sender: FDA-Public Use
  Company Number: US-BAYER-200932574NA

PATIENT
  Age: 39 Year
  Sex: Female
  Weight: 83 kg

DRUGS (6)
  1. YASMIN [Suspect]
  2. MOTRIN [Concomitant]
     Dosage: UNK UNK, PRN
  3. YASMIN [Suspect]
     Indication: ACNE
  4. FAMOTIDINE [Concomitant]
     Indication: GASTROOESOPHAGEAL REFLUX DISEASE
     Dosage: UNK
     Dates: start: 20070807
  5. YASMIN [Suspect]
     Indication: PREMENSTRUAL SYNDROME
     Dosage: UNK
     Dates: start: 20070724, end: 20070909
  6. AZITHROMYCIN [Concomitant]
     Dosage: UNK
     Dates: start: 20070822

REACTIONS (1)
  - PULMONARY EMBOLISM [None]
